FAERS Safety Report 8545658-0 (Version None)
Quarter: 2012Q3

REPORT INFORMATION
  Report Type: 
  Country: None (occurrence: None)
  Receive Date: 20120727
  Receipt Date: 20120718
  Transmission Date: 20120928
  Serious: Yes (Life-Threatening, Hospitalization, Disabling)
  Sender: FDA-Public Use
  Company Number: GB-PFIZER INC-2012106454

PATIENT
  Age: 73 Year
  Sex: Male

DRUGS (6)
  1. CO-DYDRAMOL [Concomitant]
     Dosage: UNK 1 - 2 DF 4 TIMES PER DAY
  2. PARACETAMOL [Concomitant]
     Dosage: 1 - 2 DF 4 TIMES PER DAY
  3. MOVELAT [Concomitant]
     Dosage: UP TO 3 TIMES PER DAY
  4. OMEPRAZOLE [Concomitant]
     Dosage: 20 MG, 1X/DAY
  5. IBUPROFEN [Suspect]
     Indication: OSTEOARTHRITIS
     Dosage: 600 MG, UNK
     Route: 048
     Dates: start: 20111102, end: 20111130
  6. QUININE SULFATE [Concomitant]
     Dosage: 300 MG, 1X/DAY AT NIGHT

REACTIONS (1)
  - CEREBROVASCULAR ACCIDENT [None]
